FAERS Safety Report 8068370-3 (Version None)
Quarter: 2012Q1

REPORT INFORMATION
  Report Type: 
  Country: None (occurrence: None)
  Receive Date: 20120124
  Receipt Date: 20111020
  Transmission Date: 20120608
  Serious: No
  Sender: FDA-Public Use
  Company Number: US-AMGEN-USASP2011054391

PATIENT
  Age: 73 Year
  Sex: Female

DRUGS (3)
  1. VAGIFEM [Concomitant]
  2. PROLIA [Suspect]
     Indication: OSTEOPOROSIS POSTMENOPAUSAL
     Dosage: 60 MG, Q6MO
     Dates: start: 20110922
  3. MULTIVITAMIN                       /00097801/ [Concomitant]

REACTIONS (4)
  - ABDOMINAL PAIN [None]
  - CHEST PAIN [None]
  - RASH [None]
  - URTICARIA [None]
